FAERS Safety Report 9473562 (Version 1)
Quarter: 2013Q3

REPORT INFORMATION
  Report Type: Spontaneous
  Country: US (occurrence: US)
  Receive Date: 20130823
  Receipt Date: 20130823
  Transmission Date: 20140515
  Serious: Yes (Hospitalization)
  Sender: FDA-Public Use
  Company Number: US-BAYER-2013-101931

PATIENT
  Age: 28 Year
  Sex: Female
  Weight: 72.56 kg

DRUGS (7)
  1. YASMIN [Suspect]
     Indication: ORAL CONTRACEPTION
  2. NAPROXEN [Concomitant]
  3. FLEXERIL [Concomitant]
  4. DEPO-PROVERA [Concomitant]
  5. PREVACID [Concomitant]
  6. COLACE [Concomitant]
  7. PERCOCET [Concomitant]

REACTIONS (1)
  - Deep vein thrombosis [None]
